FAERS Safety Report 7420708-3 (Version None)
Quarter: 2011Q2

REPORT INFORMATION
  Report Type: 
  Country: None (occurrence: None)
  Receive Date: 20110418
  Receipt Date: 20101019
  Transmission Date: 20111010
  Serious: Yes (Hospitalization, Other)
  Sender: FDA-Public Use
  Company Number: US-BAYER-201011764NA

PATIENT
  Age: 20 Year
  Sex: Female
  Weight: 68 kg

DRUGS (13)
  1. YAZ [Suspect]
     Dosage: UNK
     Dates: start: 20071130, end: 20080523
  2. METRONIDAZOLE [Concomitant]
     Dosage: 500 MG, UNK
     Route: 048
     Dates: start: 20080724
  3. XANAX [Concomitant]
     Indication: ANXIETY
     Dosage: UNK
     Dates: start: 20040101, end: 20100101
  4. VICODIN [Concomitant]
     Indication: ABDOMINAL PAIN UPPER
     Dosage: UNK
     Dates: start: 20070101, end: 20090101
  5. YAZ [Suspect]
     Indication: MENSTRUATION IRREGULAR
     Dosage: UNK
     Dates: start: 20060825
  6. YASMIN [Suspect]
     Indication: PRODUCT USED FOR UNKNOWN INDICATION
  7. FLUCONAZOLE [Concomitant]
     Dosage: 150 MG, UNK
     Route: 048
     Dates: start: 20080715
  8. ALPRAZOLAM [Concomitant]
     Dosage: 2 MG, UNK
     Route: 048
  9. FAMVIR [Concomitant]
     Dosage: 500 MG, UNK
     Route: 048
     Dates: start: 20070514
  10. GYNAZOLE [Concomitant]
     Dosage: 5.8 G, UNK
     Route: 048
     Dates: start: 20080723
  11. FAMVIR [Concomitant]
     Dosage: 500 MG, UNK
     Route: 048
     Dates: start: 20080329
  12. PROMETHAZINE [Concomitant]
     Dosage: 24 MG, UNK
     Route: 048
     Dates: start: 20070715
  13. LEVOTHYROXINE SODIUM [Concomitant]
     Dosage: 75 UNK, UNK
     Route: 048
     Dates: start: 20080118

REACTIONS (6)
  - ABDOMINAL PAIN LOWER [None]
  - CHOLELITHIASIS [None]
  - CHOLECYSTITIS CHRONIC [None]
  - ABDOMINAL PAIN [None]
  - NAUSEA [None]
  - VOMITING [None]
